FAERS Safety Report 21848255 (Version 5)
Quarter: 2023Q1

REPORT INFORMATION
  Report Type: Spontaneous
  Country: US (occurrence: US)
  Receive Date: 20230111
  Receipt Date: 20230321
  Transmission Date: 20230417
  Serious: No
  Sender: FDA-Public Use
  Company Number: US-PFIZER INC-202201323123

PATIENT
  Age: 15 Year
  Sex: Male
  Weight: 58.957 kg

DRUGS (1)
  1. GENOTROPIN [Suspect]
     Active Substance: SOMATROPIN
     Indication: Growth hormone deficiency
     Dosage: 2.8 MG, DAILY
     Route: 058
     Dates: start: 2021

REACTIONS (2)
  - Expired device used [Unknown]
  - Device power source issue [Unknown]
